FAERS Safety Report 5418961-0 (Version None)
Quarter: 2007Q3

REPORT INFORMATION
  Report Type: 
  Country: None (occurrence: None)
  Receive Date: 20070817
  Receipt Date: 20070806
  Transmission Date: 20080115
  Serious: Yes (Other)
  Sender: FDA-Public Use
  Company Number: US-PFIZER INC-2007066162

PATIENT
  Sex: Male
  Weight: 85 kg

DRUGS (23)
  1. CHANTIX [Suspect]
     Indication: SMOKING CESSATION THERAPY
     Dates: start: 20070802, end: 20070805
  2. PREVACID [Concomitant]
     Dosage: TEXT:30 MG DAILY
  3. PLAVIX [Concomitant]
     Dosage: TEXT:75MG DAILY
  4. LISINOPRIL [Concomitant]
  5. KLONOPIN [Concomitant]
     Dosage: TEXT:3 TIMES DAILY
  6. ALDACTONE [Concomitant]
     Dosage: TEXT:100 MG IN AM AS NEEDED
  7. SALAGEN [Concomitant]
     Indication: DRY MOUTH
     Dosage: TEXT:3 TIMES DAILY
  8. LEXAPRO [Concomitant]
     Dosage: TEXT:20 MG 1AND1 HALF PILLS AT NOON
  9. KADIAN ^KNOLL^ [Concomitant]
     Dosage: TEXT:20 MG CAPLETS AS NEEDED
  10. ALL OTHER THERAPEUTIC PRODUCTS [Concomitant]
     Dosage: TEXT:1 TWICE DAILY
  11. PERCOCET [Concomitant]
     Dosage: TEXT:19/325MG TABLETS
  12. PRAVACHOL [Concomitant]
     Indication: BLOOD CHOLESTEROL
     Dosage: TEXT:20MG AT SUPPER
  13. CYMBALTA [Concomitant]
     Dosage: TEXT:100MG 2 CAPSULES AT BEDTIME
  14. ALL OTHER THERAPEUTIC PRODUCTS [Concomitant]
     Dosage: TEXT:100MG AT SUPPER
  15. NEURONTIN [Concomitant]
     Dosage: TEXT:600MG AT SUPPER
  16. LYRICA [Concomitant]
     Indication: NEUROPATHY PERIPHERAL
  17. FLEXERIL [Concomitant]
     Indication: MYALGIA
     Dosage: TEXT:10MG TWICE DAILY
  18. REQUIP [Concomitant]
     Dosage: TEXT:1MG AT BEDTIME AS NEEDED
  19. ADVAIR DISKUS 100/50 [Concomitant]
     Dosage: TEXT:TWICE DAILY
  20. OMEGA-3 [Concomitant]
  21. VITAMIN CAP [Concomitant]
  22. VITAMIN E [Concomitant]
  23. COMBIVENT [Concomitant]
     Dosage: TEXT:2 INHALED PUFFS EVERY 4 HOURS AS NEEDED

REACTIONS (4)
  - ASTHENIA [None]
  - GAIT DISTURBANCE [None]
  - LOSS OF CONTROL OF LEGS [None]
  - WEIGHT BEARING DIFFICULTY [None]
